FAERS Safety Report 9620963 (Version 2)
Quarter: 2013Q4

REPORT INFORMATION
  Report Type: Report from Study
  Country: BE (occurrence: BE)
  Receive Date: 20131015
  Receipt Date: 20131230
  Transmission Date: 20140711
  Serious: Yes (Hospitalization)
  Sender: FDA-Public Use
  Company Number: PHHO2013BE013253

PATIENT
  Sex: 0

DRUGS (1)
  1. ACZ885 [Suspect]
     Indication: JUVENILE IDIOPATHIC ARTHRITIS
     Dosage: 4 MG/KG, UNK
     Route: 058
     Dates: start: 20121219, end: 20130911

REACTIONS (1)
  - Lymphangitis [Recovered/Resolved]
